FAERS Safety Report 10211561 (Version 2)
Quarter: 2014Q2

REPORT INFORMATION
  Report Type: Report from Study
  Country: US (occurrence: US)
  Receive Date: 20140602
  Receipt Date: 20140602
  Transmission Date: 20141212
  Serious: Yes (Life-Threatening, Hospitalization)
  Sender: FDA-Public Use
  Company Number: US-ACTELION-A-US2014-97132

PATIENT
  Age: 4 Year
  Sex: Female

DRUGS (4)
  1. TRACLEER [Suspect]
     Indication: PULMONARY ARTERIAL HYPERTENSION
     Dosage: 25 MG, BID
     Route: 048
  2. SILDENAFIL [Concomitant]
  3. REMODULIN [Concomitant]
  4. COUMADIN [Concomitant]

REACTIONS (11)
  - Upper respiratory tract infection [Recovered/Resolved]
  - White blood cell count increased [Recovered/Resolved]
  - Nasopharyngitis [Recovered/Resolved]
  - Gastrostomy [Unknown]
  - Pyrexia [Recovered/Resolved]
  - Cough [Recovered/Resolved]
  - Abdominal pain [Recovered/Resolved]
  - Oropharyngeal pain [Recovered/Resolved]
  - Vomiting [Recovered/Resolved]
  - Dyspnoea [Recovered/Resolved]
  - Tachycardia [Recovered/Resolved]
